FAERS Safety Report 6959047-3 (Version None)
Quarter: 2010Q3

REPORT INFORMATION
  Report Type: 
  Country: None (occurrence: None)
  Receive Date: 20100831
  Receipt Date: 20100816
  Transmission Date: 20110219
  Serious: No
  Sender: FDA-Public Use
  Company Number: KR-JNJFOC-20100806151

PATIENT
  Age: 67 Year
  Sex: Female

DRUGS (3)
  1. DURAGESIC-100 [Suspect]
     Indication: PAIN MANAGEMENT
     Route: 062
  2. DURAGESIC-100 [Suspect]
     Route: 062
  3. MOTILIUM [Concomitant]
     Indication: ANTIEMETIC SUPPORTIVE CARE
     Route: 048

REACTIONS (3)
  - DIZZINESS [None]
  - DRUG DOSE OMISSION [None]
  - NAUSEA [None]
